FAERS Safety Report 10793753 (Version 1)
Quarter: 2015Q1

REPORT INFORMATION
  Report Type: Report from Study
  Country: US (occurrence: US)
  Receive Date: 20150213
  Receipt Date: 20150213
  Transmission Date: 20150721
  Serious: Yes (Hospitalization)
  Sender: FDA-Public Use
  Company Number: US-ABBVIE-15K-163-1343087-00

PATIENT
  Age: 36 Year
  Sex: Male
  Weight: 93.07 kg

DRUGS (5)
  1. HUMIRA [Suspect]
     Active Substance: ADALIMUMAB
     Route: 058
  2. ASACOL [Concomitant]
     Active Substance: MESALAMINE
     Indication: PROCTITIS ULCERATIVE
  3. CANASA [Concomitant]
     Active Substance: MESALAMINE
     Indication: PROCTITIS ULCERATIVE
  4. HUMIRA [Suspect]
     Active Substance: ADALIMUMAB
     Indication: PROCTITIS ULCERATIVE
     Dosage: LOADING DOSE
     Route: 058
     Dates: start: 20150204, end: 20150204
  5. HUMIRA [Suspect]
     Active Substance: ADALIMUMAB
     Indication: COLITIS ULCERATIVE
     Dosage: LOADING DOSE
     Route: 058
     Dates: start: 20150121, end: 20150121

REACTIONS (7)
  - Chills [Recovering/Resolving]
  - Abscess [Unknown]
  - Device issue [Unknown]
  - Off label use [Not Recovered/Not Resolved]
  - Infection [Unknown]
  - Pyrexia [Recovering/Resolving]
  - Incorrect dose administered [Unknown]

NARRATIVE: CASE EVENT DATE: 201501
